FAERS Safety Report 6929548-2 (Version None)
Quarter: 2010Q3

REPORT INFORMATION
  Report Type: 
  Country: None (occurrence: None)
  Receive Date: 20100813
  Receipt Date: 20100806
  Transmission Date: 20110219
  Serious: Yes (Death)
  Sender: FDA-Public Use
  Company Number: 2010SP035695

PATIENT
  Age: 77 Year
  Sex: Female

DRUGS (2)
  1. PROVENTIL-HFA [Suspect]
     Indication: PRODUCT USED FOR UNKNOWN INDICATION
  2. PROVENTIL-HFA [Suspect]

REACTIONS (2)
  - DEVICE MALFUNCTION [None]
  - WRONG TECHNIQUE IN DRUG USAGE PROCESS [None]
